FAERS Safety Report 7980002-9 (Version None)
Quarter: 2011Q4

REPORT INFORMATION
  Report Type: 
  Country: None (occurrence: None)
  Receive Date: 20111214
  Receipt Date: 20111207
  Transmission Date: 20120403
  Serious: Yes (Other)
  Sender: FDA-Public Use
  Company Number: PHHY2011CL106934

PATIENT
  Age: 76 Year
  Sex: Female

DRUGS (5)
  1. ACLASTA [Suspect]
     Dosage: 5 MG,
     Route: 042
     Dates: start: 20110101
  2. LEVOTHYROXINE SODIUM [Concomitant]
  3. ACLASTA [Suspect]
     Dosage: 5 MG,
     Route: 042
     Dates: start: 20110601
  4. LOSAPRES-D [Concomitant]
     Dosage: 62.5 MG, LOSA 50 MG + HYDRO 12.5 MG
  5. TRAMADOL HCL [Concomitant]

REACTIONS (6)
  - FRACTURE [None]
  - UPPER LIMB FRACTURE [None]
  - BACK PAIN [None]
  - INAPPROPRIATE SCHEDULE OF DRUG ADMINISTRATION [None]
  - FALL [None]
  - FACIAL BONES FRACTURE [None]
